FAERS Safety Report 13673909 (Version 1)
Quarter: 2017Q2

REPORT INFORMATION
  Report Type: Spontaneous
  Country: US (occurrence: US)
  Receive Date: 20170621
  Receipt Date: 20170621
  Transmission Date: 20170830
  Serious: No
  Sender: FDA-Public Use
  Company Number: US-TEVA-737090USA

PATIENT
  Sex: Female

DRUGS (1)
  1. DICLOXACILLIN [Suspect]
     Active Substance: DICLOXACILLIN
     Route: 063

REACTIONS (2)
  - Exposure during breast feeding [Unknown]
  - Malaise [Unknown]
